FAERS Safety Report 9905497 (Version 1)
Quarter: 2014Q1

REPORT INFORMATION
  Report Type: Spontaneous
  Country: US (occurrence: US)
  Receive Date: 20140218
  Receipt Date: 20140218
  Transmission Date: 20141002
  Serious: Yes (Hospitalization)
  Sender: FDA-Public Use
  Company Number: US-GLAXOSMITHKLINE-A1060481A

PATIENT
  Age: 31 Year
  Sex: Male

DRUGS (4)
  1. ADVAIR [Suspect]
     Indication: ASTHMA
     Route: 055
  2. FLOVENT [Suspect]
     Indication: ASTHMA
     Route: 055
     Dates: start: 2010
  3. UNKNOWN [Suspect]
     Indication: PRODUCT USED FOR UNKNOWN INDICATION
     Route: 065
  4. NO CONCURRENT MEDICATION [Concomitant]

REACTIONS (7)
  - Loss of consciousness [Recovered/Resolved]
  - Intensive care [Recovered/Resolved]
  - Asthma [Recovered/Resolved]
  - Ill-defined disorder [Recovered/Resolved]
  - Therapy change [Recovered/Resolved]
  - Drug administration error [Not Recovered/Not Resolved]
  - Malaise [Not Recovered/Not Resolved]
